FAERS Safety Report 10615035 (Version 2)
Quarter: 2014Q4

REPORT INFORMATION
  Report Type: Report from Study
  Country: TH (occurrence: TH)
  Receive Date: 20141201
  Receipt Date: 20141201
  Transmission Date: 20150529
  Serious: Yes (Death, Hospitalization, Other)
  Sender: FDA-Public Use
  Company Number: PHHY2014TH124850

PATIENT
  Sex: Male

DRUGS (1)
  1. GLIVEC [Suspect]
     Active Substance: IMATINIB MESYLATE
     Indication: CHRONIC MYELOID LEUKAEMIA
     Dosage: 400 MG, UNK
     Route: 065

REACTIONS (6)
  - Cerebral haemorrhage [Fatal]
  - Full blood count decreased [Unknown]
  - Splenomegaly [Unknown]
  - Acute lymphocytic leukaemia [Unknown]
  - No therapeutic response [Unknown]
  - Blast crisis in myelogenous leukaemia [Unknown]
